FAERS Safety Report 24160160 (Version 1)
Quarter: 2024Q3

REPORT INFORMATION
  Report Type: Spontaneous
  Country: GB (occurrence: GB)
  Receive Date: 20240801
  Receipt Date: 20240801
  Transmission Date: 20241017
  Serious: Yes (Other)
  Sender: DEXCEL
  Company Number: None

PATIENT
  Age: 89 Year

DRUGS (6)
  1. BisoprololBISOPROLOL (Specific Substance SUB927) [Concomitant]
  2. Diclofenac sodiumDICLOFENAC SODIUM [Concomitant]
     Dosage: TAKE FOUR TIMES A DAY.
  3. ApixabanAPIXABAN [Concomitant]
     Dosage: TAKE ONE TWICE A DAY
  4. OMEPRAZOLE [Suspect]
     Active Substance: OMEPRAZOLE
  5. LatanoprostLATANOPROST [Concomitant]
     Dosage: 1 DROP B/E ON (50UG/(100.G))
  6. SimvastatinSIMVASTATIN [Concomitant]

REACTIONS (3)
  - Hyponatraemia [Recovered/Resolved]
  - Fall [Unknown]
  - Inappropriate antidiuretic hormone secretion [Unknown]
